FAERS Safety Report 18658548 (Version 3)
Quarter: 2020Q4

REPORT INFORMATION
  Report Type: Spontaneous
  Country: AU (occurrence: AU)
  Receive Date: 20201224
  Receipt Date: 20201230
  Transmission Date: 20210114
  Serious: Yes (Other)
  Sender: FDA-Public Use
  Company Number: AU-IGSA-BIG0012569

PATIENT
  Age: 66 Year
  Sex: Male
  Weight: 96 kg

DRUGS (3)
  1. FLEBOGAMMA DIF [Suspect]
     Active Substance: HUMAN IMMUNOGLOBULIN G
     Indication: MYASTHENIA GRAVIS
     Dosage: 90 GRAM, Q.3WK.
     Route: 042
     Dates: start: 20201215, end: 20201215
  2. FLEBOGAMMA DIF [Suspect]
     Active Substance: HUMAN IMMUNOGLOBULIN G
     Dosage: 30 GRAM, SINGLE
     Route: 042
     Dates: start: 20201215, end: 20201215
  3. FLEBOGAMMA DIF [Suspect]
     Active Substance: HUMAN IMMUNOGLOBULIN G
     Dosage: 90 GRAM, Q.3WK.
     Route: 042
     Dates: start: 20201215, end: 20201215

REACTIONS (1)
  - Atrial fibrillation [Recovered/Resolved]

NARRATIVE: CASE EVENT DATE: 20201215
